FAERS Safety Report 20620166 (Version 1)
Quarter: 2022Q1

REPORT INFORMATION
  Report Type: Spontaneous
  Country: NL (occurrence: NL)
  Receive Date: 20220322
  Receipt Date: 20220322
  Transmission Date: 20220423
  Serious: Yes (Other)
  Sender: FDA-Public Use
  Company Number: None

PATIENT
  Sex: Male
  Weight: 77 kg

DRUGS (2)
  1. METOPROLOL [Suspect]
     Active Substance: METOPROLOL
     Indication: Atrial fibrillation
     Dosage: 50 MILLIGRAM
     Dates: start: 202202, end: 20220303
  2. APIXABAN [Concomitant]
     Active Substance: APIXABAN
     Dosage: TABLET, 2,5 MG (MILLIGRAM)

REACTIONS (1)
  - Erectile dysfunction [Unknown]
